FAERS Safety Report 8593632 (Version 2)
Quarter: 2012Q4

REPORT INFORMATION
  Report Type: 
  Country: US (occurrence: US)
  Receive Date: 20120604
  Receipt Date: 20121018
  Transmission Date: 20130627
  Serious: Yes (Hospitalization)
  Sender: FDA-Public Use
  Company Number: US-BAYER-2012-053884

PATIENT
  Age: 30 Year
  Sex: Female
  Weight: 68.03 kg

DRUGS (9)
  1. YAZ [Suspect]
     Dosage: UNK
     Dates: start: 20070918, end: 20110919
  2. EPIPEN [Concomitant]
     Indication: ARTHROPOD STING
     Dosage: 1 mg/ml, with sting
     Route: 030
  3. IMITREX [Concomitant]
     Indication: HEADACHE
     Dosage: 100 mg, PRN
     Route: 048
  4. ZYRTEC [Concomitant]
     Dosage: UNK, NOS
  5. FLONASE [Concomitant]
     Dosage: 50 ?g, UNK
     Route: 045
  6. PRILOSEC [Concomitant]
     Dosage: 20 mg, QD
     Route: 048
  7. CLARITIN-D [Concomitant]
     Dosage: 1 QD
     Route: 048
  8. NAPROXEN [Concomitant]
     Dosage: UNK UNK, PRN
  9. IBUPROFEN [Concomitant]
     Dosage: UNK UNK, PRN

REACTIONS (13)
  - Deep vein thrombosis [Recovered/Resolved]
  - Pain [None]
  - General physical health deterioration [None]
  - Injury [None]
  - Anxiety [None]
  - Emotional distress [None]
  - Pain in extremity [Recovered/Resolved]
  - Gastrointestinal disorder [None]
  - Abdominal pain upper [None]
  - Constipation [None]
  - Diarrhoea [None]
  - Haemorrhoids [None]
  - Piloerection [None]
